FAERS Safety Report 6437904-4 (Version None)
Quarter: 2009Q4

REPORT INFORMATION
  Report Type: 
  Country: None (occurrence: None)
  Receive Date: 20091112
  Receipt Date: 20081013
  Transmission Date: 20100525
  Serious: No
  Sender: FDA-Public Use
  Company Number: US-ASTRAZENECA-2009UW15515

PATIENT
  Age: 68 Year
  Sex: Female

DRUGS (4)
  1. PRILOSEC OTC [Suspect]
     Indication: DYSPEPSIA
     Dosage: 1 TABLET, 1 /DAY FOR 1 DAY
     Route: 048
     Dates: start: 20081013, end: 20081013
  2. LEXAPRO [Concomitant]
     Dosage: UNKNOWN
  3. LORAZEPAM [Concomitant]
     Dosage: UNKNOWN
  4. SEROQUEL [Concomitant]
     Dosage: UNKNOWN

REACTIONS (1)
  - MUSCULOSKELETAL CHEST PAIN [None]
